FAERS Safety Report 9015990 (Version 2)
Quarter: 2013Q1

REPORT INFORMATION
  Report Type: Spontaneous
  Country: IL (occurrence: IL)
  Receive Date: 20130116
  Receipt Date: 20130204
  Transmission Date: 20140127
  Serious: Yes (Other)
  Sender: FDA-Public Use
  Company Number: IL-NAPPMUNDI-GBR-2013-0012508

PATIENT
  Sex: Female

DRUGS (3)
  1. BUTRANS 20MG TRANSDERMAL PATCH [Suspect]
     Indication: PAIN
     Dosage: 20 MCG, Q1H
     Route: 062
  2. CYMBALTA [Concomitant]
     Dosage: 30 MG, UNK
     Dates: start: 20130102
  3. OXYCOD                             /00045603/ [Concomitant]
     Dosage: 10 MG, UNK
     Dates: start: 20130102

REACTIONS (1)
  - Application site haemorrhage [Not Recovered/Not Resolved]
